FAERS Safety Report 11061665 (Version 1)
Quarter: 2015Q2

REPORT INFORMATION
  Report Type: Spontaneous
  Country: US (occurrence: None)
  Receive Date: 20150422
  Receipt Date: 20150422
  Transmission Date: 20150821
  Serious: Yes (Life-Threatening, Hospitalization, Other)
  Sender: FDA-Public Use
  Company Number: CC14-1676

PATIENT
  Age: 6 Year
  Sex: Male
  Weight: 18 kg

DRUGS (1)
  1. LEVETIRACETAM ORAL SOLLUTON, 100MG/ML (TOLMAR INC.) ` [Suspect]
     Active Substance: LEVETIRACETAM
     Dosage: 3.5 OZ

REACTIONS (5)
  - Hyporeflexia [None]
  - Somnolence [None]
  - Hypotension [None]
  - Accidental overdose [None]
  - Lethargy [None]
